FAERS Safety Report 6956418-6 (Version None)
Quarter: 2010Q3

REPORT INFORMATION
  Report Type: 
  Country: None (occurrence: None)
  Receive Date: 20100830
  Receipt Date: 20100818
  Transmission Date: 20110219
  Serious: Yes (Other)
  Sender: FDA-Public Use
  Company Number: B0670392A

PATIENT
  Sex: Female
  Weight: 133.4 kg

DRUGS (8)
  1. ZOPHREN [Suspect]
     Indication: VOMITING
     Dosage: 8MG PER DAY
     Route: 042
     Dates: start: 20091126, end: 20091130
  2. RASBURICASE [Suspect]
     Dosage: 26.6MG CYCLIC
     Route: 042
     Dates: start: 20091126, end: 20091127
  3. ZAVEDOS [Suspect]
     Dosage: 16MG CYCLIC
     Route: 042
     Dates: start: 20091126, end: 20091130
  4. BELUSTINE [Suspect]
     Dosage: 400MG CYCLIC
     Route: 048
     Dates: start: 20091126, end: 20091126
  5. ARACYTINE [Suspect]
     Dosage: 200MG CYCLIC
     Route: 042
     Dates: start: 20091126, end: 20091202
  6. HYDREA [Suspect]
     Dosage: 4000MG CYCLIC
     Route: 048
     Dates: start: 20091124, end: 20091124
  7. EMEND [Concomitant]
     Indication: VOMITING
     Route: 065
     Dates: start: 20091126, end: 20091128
  8. LEVOTHYROXINE SODIUM [Concomitant]
     Indication: HYPOTHYROIDISM
     Dosage: 100MCG PER DAY
     Route: 065

REACTIONS (5)
  - BILIRUBIN CONJUGATED INCREASED [None]
  - BLOOD BILIRUBIN INCREASED [None]
  - CYTOLYTIC HEPATITIS [None]
  - HEPATIC STEATOSIS [None]
  - JAUNDICE [None]
